FAERS Safety Report 21944548 (Version 1)
Quarter: 2023Q1

REPORT INFORMATION
  Report Type: Spontaneous
  Country: US (occurrence: US)
  Receive Date: 20230202
  Receipt Date: 20230202
  Transmission Date: 20230418
  Serious: Yes (Other)
  Sender: FDA-Public Use
  Company Number: US-MYLANLABS-2023M1011057

PATIENT
  Sex: Female
  Weight: 56.7 kg

DRUGS (1)
  1. TAMOXIFEN [Suspect]
     Active Substance: TAMOXIFEN
     Indication: Breast cancer
     Dosage: 25 MILLIGRAM
     Route: 065
     Dates: start: 201706, end: 202205

REACTIONS (6)
  - Osteonecrosis of jaw [Unknown]
  - Jaw disorder [Unknown]
  - Tooth loss [Unknown]
  - Gingival abscess [Unknown]
  - Taste disorder [Unknown]
  - Dental discomfort [Unknown]
